FAERS Safety Report 18622030 (Version 1)
Quarter: 2020Q4

REPORT INFORMATION
  Report Type: Spontaneous
  Country: CN (occurrence: CN)
  Receive Date: 20201216
  Receipt Date: 20201216
  Transmission Date: 20210114
  Serious: Yes (Hospitalization)
  Sender: FDA-Public Use
  Company Number: CN-009507513-2012CHN005696

PATIENT
  Age: 72 Year
  Sex: Female
  Weight: 35 kg

DRUGS (2)
  1. KEYTRUDA [Suspect]
     Active Substance: PEMBROLIZUMAB
     Indication: IMMUNOSUPPRESSION
     Dosage: 100 MILLIGRAM, QD /SECOND CYCLE DAY 1
     Route: 041
     Dates: start: 20201009, end: 20201009
  2. PACLITAXEL ALBUMIN [Suspect]
     Active Substance: PACLITAXEL
     Indication: NEOPLASM MALIGNANT
     Dosage: 100 MILLIGRAM, QD /SECOND CYCLE DAY 1
     Route: 041
     Dates: start: 20201009, end: 20201009

REACTIONS (2)
  - Hepatic function abnormal [Recovering/Resolving]
  - Product use issue [Unknown]

NARRATIVE: CASE EVENT DATE: 20201019
